FAERS Safety Report 9521405 (Version 1)
Quarter: 2013Q1

REPORT INFORMATION
  Report Type: Spontaneous
  Country: US (occurrence: None)
  Receive Date: 20130305
  Receipt Date: 20130305
  Transmission Date: 20140127
  Serious: Yes (Other)
  Sender: FDA-Public Use
  Company Number: 163-21880-12072533

PATIENT
  Age: 70 Year
  Sex: Male

DRUGS (10)
  1. REVLIMID (LENALIDOMIDE) (CAPSULES) [Suspect]
     Indication: PLASMA CELL MYELOMA
     Route: 048
     Dates: start: 201201
  2. ASPIRIN (ACETYLSALICYLIC ACID) [Concomitant]
  3. AMLODIPINE (AMLODIPINE) [Concomitant]
  4. OMEPRAZOLE (OMEPRAZOLE) [Concomitant]
  5. FINASTERIDE (FINASTERIDE) [Concomitant]
  6. VITAMINS [Concomitant]
  7. LOSARTAN (LOSARTAN) [Concomitant]
  8. GLUCOS/CHOND (GLUCOSAMINE W/CHONDROITIN SULFATE) [Concomitant]
  9. CALCIUM (CALCIUM) [Concomitant]
  10. TYLENOL (PARACETAMOL) [Concomitant]

REACTIONS (2)
  - Thrombosis [None]
  - Pulmonary thrombosis [None]
